FAERS Safety Report 4695815-9 (Version None)
Quarter: 2005Q2

REPORT INFORMATION
  Report Type: 
  Country: None (occurrence: None)
  Receive Date: 20050608
  Receipt Date: 20050302
  Transmission Date: 20051028
  Serious: Yes (Other)
  Sender: FDA-Public Use
  Company Number: 397295

PATIENT

DRUGS (3)
  1. ISOTRETINOIN [Suspect]
     Dosage: 35 MG ORAL
     Route: 048
     Dates: start: 20040615, end: 20041115
  2. CYPROTERONE/ETHINYLESTRADIOL (CYPROTERONE ACETATE/ETHINYL ESTRADIOL) [Suspect]
     Indication: CONTRACEPTION
     Dosage: ORAL
     Route: 048
  3. DIANE (CYPROTERONE ACETATE/ETHINYL ESTRADIOL) [Concomitant]

REACTIONS (3)
  - ABORTION INDUCED [None]
  - MUSCLE SPASMS [None]
  - PREGNANCY [None]
